FAERS Safety Report 5334973-X (Version None)
Quarter: 2007Q2

REPORT INFORMATION
  Report Type: 
  Country: None (occurrence: None)
  Receive Date: 20070525
  Receipt Date: 20070313
  Transmission Date: 20071010
  Serious: Yes (Death, Life-Threatening, Hospitalization)
  Sender: FDA-Public Use
  Company Number: IE-SOLVAY-00207000153

PATIENT
  Age: 18766 Day
  Sex: Male
  Weight: 73 kg

DRUGS (1)
  1. COVERSYL PLUS [Suspect]
     Indication: BLOOD PRESSURE INCREASED
     Dosage: DAILY DOSE:  UNIT DOSE: 4 MG/1.25 MG TABLETS
     Route: 048
     Dates: start: 20060519, end: 20060801

REACTIONS (4)
  - ACUTE HEPATIC FAILURE [None]
  - EPSTEIN-BARR VIRUS INFECTION [None]
  - PANCREATITIS [None]
  - PANCYTOPENIA [None]
